FAERS Safety Report 5501110-8 (Version None)
Quarter: 2007Q4

REPORT INFORMATION
  Report Type: 
  Country: None (occurrence: None)
  Receive Date: 20071026
  Receipt Date: 20071012
  Transmission Date: 20080405
  Serious: Yes (Other)
  Sender: FDA-Public Use
  Company Number: 019794

PATIENT
  Age: 76 Year
  Sex: Female

DRUGS (2)
  1. CIPROFLOXACIN HCL [Suspect]
     Dosage: 250 MG, TID,
  2. SULFAMETHOXAZOLE AND TRIMETHOPRIM [Concomitant]

REACTIONS (5)
  - CONFUSIONAL STATE [None]
  - DELUSIONAL DISORDER, PERSECUTORY TYPE [None]
  - DRUG INEFFECTIVE [None]
  - FEAR [None]
  - PSYCHOMOTOR HYPERACTIVITY [None]
